FAERS Safety Report 25069377 (Version 1)
Quarter: 2025Q1

REPORT INFORMATION
  Report Type: Spontaneous
  Country: US (occurrence: None)
  Receive Date: 20250312
  Receipt Date: 20250312
  Transmission Date: 20250408
  Serious: Yes (Hospitalization)
  Sender: FDA-CTU
  Company Number: None

PATIENT
  Age: 59 Year
  Sex: Female

DRUGS (5)
  1. NUCALA [Suspect]
     Active Substance: MEPOLIZUMAB
     Indication: Asthma
     Dosage: FREQUENCY : MONTHLY;?
     Route: 058
     Dates: start: 20240820
  2. NUCALA [Suspect]
     Active Substance: MEPOLIZUMAB
     Indication: Asthma
  3. ALBUTEROL AER HFA [Concomitant]
  4. NITROGLYCERN SUB 0.3MG [Concomitant]
  5. SYMBICORT AER 160-4.5 [Concomitant]

REACTIONS (4)
  - Cardiac failure chronic [None]
  - Injection site reaction [None]
  - Injection site bruising [None]
  - Therapy interrupted [None]

NARRATIVE: CASE EVENT DATE: 20250221
